FAERS Safety Report 9472429 (Version 1)
Quarter: 2013Q3

REPORT INFORMATION
  Report Type: Spontaneous
  Country: AU (occurrence: AU)
  Receive Date: 20130823
  Receipt Date: 20130823
  Transmission Date: 20140515
  Serious: Yes (Hospitalization)
  Sender: FDA-Public Use
  Company Number: AU-MYLANLABS-2013S1017865

PATIENT
  Age: 72 Year
  Sex: Male

DRUGS (3)
  1. UREMIDE [Suspect]
     Indication: ATRIAL FIBRILLATION
     Route: 048
     Dates: start: 2010
  2. KARVEZIDE [Concomitant]
  3. DIGOXIN [Concomitant]

REACTIONS (2)
  - Drug ineffective [Recovered/Resolved]
  - Pulmonary oedema [Recovered/Resolved]
